FAERS Safety Report 4851261-6 (Version None)
Quarter: 2005Q4

REPORT INFORMATION
  Report Type: 
  Country: None (occurrence: None)
  Receive Date: 20051130
  Receipt Date: 20051031
  Transmission Date: 20060501
  Serious: Yes (Hospitalization)
  Sender: FDA-Public Use
  Company Number: FABR-11299

PATIENT
  Age: 45 Year
  Sex: Male
  Weight: 71.5 kg

DRUGS (4)
  1. FABRAZYME [Suspect]
     Indication: FABRY'S DISEASE
     Dosage: 70 MG Q2WKS  IV
     Route: 042
  2. FABRAZYME [Suspect]
     Indication: FABRY'S DISEASE
     Dosage: 1 MG/KG Q2WKS  IV
     Route: 042
     Dates: start: 20040204, end: 20050629
  3. FABRAZYME [Suspect]
     Indication: FABRY'S DISEASE
     Dosage: 1 MG/KG  Q2WKS  IV
     Route: 042
     Dates: start: 20010731, end: 20040115
  4. NEURONTIN [Concomitant]

REACTIONS (1)
  - MYALGIA [None]
